FAERS Safety Report 16094495 (Version 1)
Quarter: 2019Q2

REPORT INFORMATION
  Report Type: Spontaneous
  Country: US (occurrence: US)
  Receive Date: 20190319
  Receipt Date: 20190319
  Transmission Date: 20190711
  Serious: Yes (Hospitalization)
  Sender: FDA-Public Use
  Company Number: None

PATIENT
  Age: 45 Year
  Sex: Female

DRUGS (5)
  1. COSENTYX [Concomitant]
     Active Substance: SECUKINUMAB
     Dates: start: 20190112
  2. TOBRAMYCIN/DEXAMETHASONE SUS 0.3-0.1% [Concomitant]
     Dates: start: 20190227
  3. TYLENOL 325MG CAPSULES [Concomitant]
     Dates: start: 20190112
  4. COSENTYX [Suspect]
     Active Substance: SECUKINUMAB
     Indication: PSORIASIS
     Dosage: ?          OTHER FREQUENCY:EVERY 4 WEEKS;?
     Route: 058
  5. ALPRAZOLAM 0.5MG TABLETS [Concomitant]
     Dates: start: 20190313

REACTIONS (3)
  - Product dose omission [None]
  - Condition aggravated [None]
  - Bone pain [None]

NARRATIVE: CASE EVENT DATE: 20190304
